FAERS Safety Report 17826341 (Version 2)
Quarter: 2020Q2

REPORT INFORMATION
  Report Type: Spontaneous
  Country: US (occurrence: US)
  Receive Date: 20200526
  Receipt Date: 20200528
  Transmission Date: 20200714
  Serious: Yes (Death)
  Sender: FDA-Public Use
  Company Number: US-PFIZER INC-2020206138

PATIENT
  Age: 44 Year
  Sex: Female
  Weight: 55.3 kg

DRUGS (2)
  1. BUPIVACAINE. [Concomitant]
     Active Substance: BUPIVACAINE
     Indication: LOCAL ANAESTHESIA
     Dosage: 0.75 % (0.75% BUPIVACAINE WERE INJECTED IN 1-ML ALIQUOTS)
     Dates: start: 200109
  2. DEPO-MEDROL [Suspect]
     Active Substance: METHYLPREDNISOLONE ACETATE
     Indication: RADICULOPATHY
     Dosage: 80 MG (THREE MILLILITERS)
     Route: 008
     Dates: start: 200109

REACTIONS (3)
  - Product use issue [Unknown]
  - Product use in unapproved indication [Unknown]
  - Off label use [Unknown]

NARRATIVE: CASE EVENT DATE: 200109
